FAERS Safety Report 4663127-5 (Version None)
Quarter: 2005Q2

REPORT INFORMATION
  Report Type: 
  Country: None (occurrence: None)
  Receive Date: 20050510
  Receipt Date: 20040525
  Transmission Date: 20051028
  Serious: Yes (Hospitalization)
  Sender: FDA-Public Use
  Company Number: PHEH2004US05787

PATIENT
  Age: 30 Year
  Sex: Male

DRUGS (3)
  1. TEGRETOL [Suspect]
     Indication: CONVULSION
     Dosage: 200 MG, BID, ORAL
     Route: 048
     Dates: start: 20030528, end: 20040504
  2. DEPAKOTE (VALPROATE SEMISOIDUM) [Concomitant]
  3. KEPPRA [Concomitant]

REACTIONS (1)
  - CONVULSION [None]
